FAERS Safety Report 7357193-6 (Version None)
Quarter: 2011Q1

REPORT INFORMATION
  Report Type: 
  Country: None (occurrence: None)
  Receive Date: 20110317
  Receipt Date: 20110311
  Transmission Date: 20110831
  Serious: Yes (Other)
  Sender: FDA-Public Use
  Company Number: US-PFIZER INC-2006069831

PATIENT
  Sex: Female

DRUGS (6)
  1. LANTUS [Concomitant]
     Dosage: UNK
     Dates: start: 20021002, end: 20031028
  2. NEURONTIN [Suspect]
     Dosage: 600MG TWICE DAILY AND 900MG AT BED TIME
     Dates: start: 20030101
  3. FLUOXETINE [Concomitant]
     Dosage: 20 MG, UNK
     Dates: start: 20020202, end: 20031230
  4. NEURONTIN [Suspect]
     Dosage: 400 MG, UNK
     Dates: start: 20030301
  5. GABITRIL [Concomitant]
     Dosage: UNK
     Dates: start: 20021203, end: 20030131
  6. NEURONTIN [Suspect]
     Indication: ILL-DEFINED DISORDER
     Dosage: 300 MG, UNK
     Dates: start: 20021030

REACTIONS (1)
  - SUICIDE ATTEMPT [None]
